FAERS Safety Report 8951321 (Version 1)
Quarter: 2012Q4

REPORT INFORMATION
  Report Type: Report from Study
  Country: KR (occurrence: KR)
  Receive Date: 20121207
  Receipt Date: 20121207
  Transmission Date: 20130627
  Serious: Yes (Other)
  Sender: FDA-Public Use
  Company Number: KR-ASTELLAS-2011JP000055

PATIENT
  Age: 49 Year
  Sex: Female

DRUGS (8)
  1. MICAFUNGIN INJECTION [Suspect]
     Indication: INFECTION PROPHYLAXIS
     Dosage: 50 mg, Unknown/D
     Route: 042
     Dates: start: 20100123, end: 20100212
  2. FILGRASTIM [Concomitant]
     Dosage: 450 ug, Unknown/D
     Route: 042
     Dates: start: 20100127, end: 20100212
  3. ACYCLOVIR [Concomitant]
     Dosage: 880 mg, Unknown/D
     Route: 042
     Dates: start: 20100123
  4. CIPROFLOXACIN [Concomitant]
     Dosage: 1000 mg, Unknown/D
     Route: 048
     Dates: start: 20100123, end: 20100130
  5. CIPROFLOXACIN [Concomitant]
     Dosage: 800 mg, Unknown/D
     Route: 042
     Dates: start: 20100131, end: 20100201
  6. VANCOMYCIN [Concomitant]
     Dosage: 2000 mg, Unknown/D
     Route: 042
     Dates: start: 20100110
  7. TRAMADOL [Concomitant]
     Dosage: 200 mg, Unknown/D
     Route: 042
     Dates: start: 20100114
  8. NYSTATIN [Concomitant]
     Dosage: 500 ml, Unknown/D
     Route: 048
     Dates: start: 20100130, end: 20100213

REACTIONS (3)
  - Pharyngeal oedema [Recovered/Resolved]
  - Oral disorder [Recovered/Resolved]
  - Constipation [Recovered/Resolved]
